FAERS Safety Report 20321274 (Version 1)
Quarter: 2022Q1

REPORT INFORMATION
  Report Type: Other
  Country: US (occurrence: None)
  Receive Date: 20220111
  Receipt Date: 20220111
  Transmission Date: 20220424
  Serious: No
  Sender: FDA-Public Use
  Company Number: US-ROCHE-2998011

PATIENT
  Age: 70 Year
  Sex: Female
  Weight: 69.462 kg

DRUGS (5)
  1. OCREVUS [Suspect]
     Active Substance: OCRELIZUMAB
     Indication: Relapsing-remitting multiple sclerosis
     Dosage: THEN 600 MG EVERY 6 MONTHS; DATE OF TREATMENT: 07-JUL-2021, 06-JAN-2021, 28-MAY-2020, 27-NOV-2019, 2
     Route: 042
     Dates: start: 20190522
  2. LEVOTHYROXINE [Concomitant]
     Active Substance: LEVOTHYROXINE
     Dosage: STARTED BEFORE OCREVUS ;ONGOING: YES
     Route: 048
  3. OXYBUTYNIN [Concomitant]
     Active Substance: OXYBUTYNIN
     Dosage: STARTED BEFORE OCREVUS ;ONGOING: YES
     Route: 048
  4. PANTOPRAZOLE [Concomitant]
     Active Substance: PANTOPRAZOLE
     Dosage: YES
     Route: 048
     Dates: start: 20211214
  5. MONTELUKAST [Concomitant]
     Active Substance: MONTELUKAST SODIUM
     Dosage: YES
     Route: 048
     Dates: start: 20211202

REACTIONS (6)
  - COVID-19 [Not Recovered/Not Resolved]
  - Gastritis [Unknown]
  - Gastrooesophageal reflux disease [Not Recovered/Not Resolved]
  - Hypertension [Unknown]
  - Weight decreased [Unknown]
  - Fatigue [Not Recovered/Not Resolved]

NARRATIVE: CASE EVENT DATE: 20210601
